FAERS Safety Report 6419218-1 (Version None)
Quarter: 2009Q4

REPORT INFORMATION
  Report Type: 
  Country: None (occurrence: None)
  Receive Date: 20091029
  Receipt Date: 20091022
  Transmission Date: 20100525
  Serious: Yes (Death, Hospitalization)
  Sender: FDA-Public Use
  Company Number: NL-NOVOPROD-292630

PATIENT
  Age: 78 Year
  Sex: Male

DRUGS (9)
  1. ACTRAPID [Suspect]
     Indication: DRUG USE FOR UNKNOWN INDICATION
     Dosage: LESS THAN 10 IU PER HOUR
     Route: 058
     Dates: start: 20090930
  2. ACTRAPID [Suspect]
     Dosage: 28 IU PER HOUR
     Route: 058
  3. HEPARIN [Concomitant]
     Indication: DRUG USE FOR UNKNOWN INDICATION
  4. ENOXIMONE [Concomitant]
     Indication: DRUG USE FOR UNKNOWN INDICATION
  5. NORADRENALIN                       /00127501/ [Concomitant]
     Indication: DRUG USE FOR UNKNOWN INDICATION
  6. LIDOCAINE [Concomitant]
     Indication: DRUG USE FOR UNKNOWN INDICATION
  7. CORDARONE [Concomitant]
     Indication: DRUG USE FOR UNKNOWN INDICATION
  8. FENTANYL-100 [Concomitant]
     Indication: DRUG USE FOR UNKNOWN INDICATION
  9. ANTIBIOTICS [Concomitant]
     Indication: DRUG USE FOR UNKNOWN INDICATION

REACTIONS (3)
  - BLOOD GLUCOSE INCREASED [None]
  - CARDIOGENIC SHOCK [None]
  - DRUG INEFFECTIVE [None]
